FAERS Safety Report 22145380 (Version 3)
Quarter: 2024Q1

REPORT INFORMATION
  Report Type: Report from Study
  Country: GB (occurrence: GB)
  Receive Date: 20230328
  Receipt Date: 20240223
  Transmission Date: 20240410
  Serious: Yes (Hospitalization, Other)
  Sender: FDA-Public Use
  Company Number: GB-ROCHE-3006806

PATIENT
  Age: 76 Year
  Sex: Male
  Weight: 58.7 kg

DRUGS (29)
  1. CARBOPLATIN [Suspect]
     Active Substance: CARBOPLATIN
     Indication: Small cell lung cancer extensive stage
     Route: 065
     Dates: start: 20211029
  2. ATEZOLIZUMAB [Suspect]
     Active Substance: ATEZOLIZUMAB
     Indication: Small cell lung cancer extensive stage
     Dosage: ON 08/AUG/2022, RECEIVED MOST RECENT DOSE 1680 MG OF ATEZOLIZUMAB (IV) PRIOR TO ADVERSE EVENT (AE)
     Route: 041
     Dates: start: 20211029
  3. GRANISETRON [Concomitant]
     Active Substance: GRANISETRON
     Indication: Product used for unknown indication
     Dosage: DURATION: 1 DAY
     Dates: start: 20211208, end: 20211208
  4. GRANISETRON [Concomitant]
     Active Substance: GRANISETRON
     Indication: Product used for unknown indication
     Dosage: DURATION: 1 DAY
     Dates: start: 20211117, end: 20211117
  5. GRANISETRON [Concomitant]
     Active Substance: GRANISETRON
     Indication: Product used for unknown indication
     Dosage: DURATION: 1 DAY
     Dates: start: 20211229, end: 20211229
  6. ETOPOSIDE [Suspect]
     Active Substance: ETOPOSIDE
     Indication: Small cell lung cancer extensive stage
     Route: 042
     Dates: start: 20211029
  7. ETOPOSIDE [Suspect]
     Active Substance: ETOPOSIDE
     Indication: Small cell lung cancer extensive stage
     Route: 065
     Dates: start: 20211118
  8. LEVOFLOXACIN [Concomitant]
     Active Substance: LEVOFLOXACIN
     Indication: Product used for unknown indication
     Dosage: DURATION: 10 DAYS
     Dates: start: 20211102, end: 20211111
  9. ONDANSETRON [Concomitant]
     Active Substance: ONDANSETRON
     Indication: Product used for unknown indication
     Dosage: DURATION: 2 DAYS
     Dates: start: 20211118, end: 20211119
  10. ONDANSETRON [Concomitant]
     Active Substance: ONDANSETRON
     Indication: Product used for unknown indication
     Dosage: DURATION: 2 DAYS
     Dates: start: 20211230, end: 20211231
  11. ONDANSETRON [Concomitant]
     Active Substance: ONDANSETRON
     Indication: Product used for unknown indication
     Dosage: DURATION: 2 DAYS
     Dates: start: 20211209, end: 20211210
  12. AMLODIPINE [Concomitant]
     Active Substance: AMLODIPINE BESYLATE
     Indication: Product used for unknown indication
     Dosage: ONCE DAILY
     Route: 065
     Dates: start: 20211003
  13. ATORVASTATIN [Concomitant]
     Active Substance: ATORVASTATIN
     Indication: Product used for unknown indication
     Route: 065
     Dates: start: 20211003
  14. CHLORPHENIRAMINE MALEATE [Concomitant]
     Active Substance: CHLORPHENIRAMINE MALEATE
     Indication: Product used for unknown indication
     Dates: start: 20211117, end: 20211117
  15. CHLORPHENIRAMINE MALEATE [Concomitant]
     Active Substance: CHLORPHENIRAMINE MALEATE
     Indication: Product used for unknown indication
     Dates: start: 20211208, end: 20211208
  16. CHLORPHENIRAMINE MALEATE [Concomitant]
     Active Substance: CHLORPHENIRAMINE MALEATE
     Indication: Product used for unknown indication
     Dates: start: 20211229, end: 20211229
  17. DEXAMETHASONE [Concomitant]
     Active Substance: DEXAMETHASONE
     Indication: Product used for unknown indication
     Dosage: DURATION: 3 DAYS
     Dates: start: 20211230, end: 20220101
  18. DEXAMETHASONE [Concomitant]
     Active Substance: DEXAMETHASONE
     Indication: Product used for unknown indication
     Dosage: DURATION: 1 DAY
     Dates: start: 20211117, end: 20211117
  19. DEXAMETHASONE [Concomitant]
     Active Substance: DEXAMETHASONE
     Indication: Product used for unknown indication
     Dosage: DURATION: 1 DAY
     Route: 065
     Dates: start: 20211208, end: 20211208
  20. DEXAMETHASONE [Concomitant]
     Active Substance: DEXAMETHASONE
     Indication: Product used for unknown indication
     Dosage: DURATION: 1 DAY
     Dates: start: 20211229, end: 20211229
  21. DEXAMETHASONE [Concomitant]
     Active Substance: DEXAMETHASONE
     Indication: Product used for unknown indication
     Dosage: DURATION: 3 DAYS
     Dates: start: 20211209, end: 20211211
  22. DEXAMETHASONE [Concomitant]
     Active Substance: DEXAMETHASONE
     Indication: Product used for unknown indication
     Dosage: DURATION: 3 DAYS
     Dates: start: 20211118, end: 20211120
  23. FAMOTIDINE [Concomitant]
     Active Substance: FAMOTIDINE
     Indication: Product used for unknown indication
     Dosage: DURATION: 17 DAYS
     Dates: start: 20211117, end: 20211117
  24. FAMOTIDINE [Concomitant]
     Active Substance: FAMOTIDINE
     Indication: Product used for unknown indication
     Dates: start: 20211208, end: 20211208
  25. FAMOTIDINE [Concomitant]
     Active Substance: FAMOTIDINE
     Indication: Product used for unknown indication
     Dosage: DURATION: 1 DAY
     Dates: start: 20211229, end: 20211229
  26. FILGRASTIM [Concomitant]
     Active Substance: FILGRASTIM
     Indication: Product used for unknown indication
     Dosage: 30 MEGAUNITS, DURATION: 5 DAYS
     Dates: start: 20220102, end: 20220106
  27. FILGRASTIM [Concomitant]
     Active Substance: FILGRASTIM
     Indication: Product used for unknown indication
     Dosage: 30 MEGAUNITS, DURATION: 5 DAYS
     Dates: start: 20211212, end: 20211216
  28. FILGRASTIM [Concomitant]
     Active Substance: FILGRASTIM
     Indication: Product used for unknown indication
     Dosage: 30 MEGAUNITS, DURATION: 5 DAYS
     Dates: start: 20211102, end: 20211106
  29. FILGRASTIM [Concomitant]
     Active Substance: FILGRASTIM
     Indication: Product used for unknown indication
     Dosage: 30 MEGAUNITS, DURATION: 5 DAYS
     Dates: start: 20211121, end: 20211125

REACTIONS (18)
  - Thrombocytopenia [Recovered/Resolved]
  - Lethargy [Recovered/Resolved]
  - Vomiting [Recovered/Resolved]
  - Diarrhoea [Recovered/Resolved]
  - Anaemia [Recovered/Resolved]
  - Platelet count decreased [Recovered/Resolved]
  - Cough [Recovered/Resolved]
  - Pneumonia [Recovered/Resolved]
  - Alanine aminotransferase increased [Recovered/Resolved]
  - Atrial flutter [Not Recovered/Not Resolved]
  - Epistaxis [Recovered/Resolved]
  - Alopecia [Recovered/Resolved]
  - Alanine aminotransferase increased [Recovered/Resolved]
  - Dyspnoea [Recovered/Resolved]
  - Rash pustular [Recovered/Resolved]
  - Fatigue [Recovered/Resolved]
  - Myalgia [Recovered/Resolved]
  - Nausea [Recovered/Resolved]

NARRATIVE: CASE EVENT DATE: 20211206
